FAERS Safety Report 5242323-2 (Version None)
Quarter: 2007Q1

REPORT INFORMATION
  Report Type: 
  Country: None (occurrence: None)
  Receive Date: 20070216
  Receipt Date: 20070216
  Transmission Date: 20070707
  Serious: Yes (Hospitalization)
  Sender: FDA-Public Use
  Company Number: None

PATIENT
  Age: 52 Year
  Sex: Male

DRUGS (6)
  1. RIBAVIRIN [Suspect]
     Indication: HEPATITIS C
     Dosage: 500 MG QD
     Dates: start: 20060301
  2. ETODOLAC [Concomitant]
  3. LOPERAMIDE HCL [Concomitant]
  4. PEG-INTRON [Concomitant]
  5. TEMAZEPAM [Concomitant]
  6. CITALOPRAM HYDROBROMIDE [Concomitant]

REACTIONS (1)
  - ANAEMIA [None]
